FAERS Safety Report 13919078 (Version 1)
Quarter: 2017Q3

REPORT INFORMATION
  Report Type: Spontaneous
  Country: JP (occurrence: JP)
  Receive Date: 20170830
  Receipt Date: 20170830
  Transmission Date: 20171127
  Serious: Yes (Hospitalization, Other)
  Sender: FDA-Public Use
  Company Number: JP-CHARTWELL PHARMA-2025292

PATIENT
  Age: 65 Year
  Sex: Female

DRUGS (3)
  1. AMOXICILLIN. [Suspect]
     Active Substance: AMOXICILLIN
     Dates: start: 2015, end: 2015
  2. VONOPRAZAN [Suspect]
     Active Substance: VONOPRAZAN
     Dates: start: 2015, end: 2015
  3. METRONIDAZOLE. [Suspect]
     Active Substance: METRONIDAZOLE
     Indication: HELICOBACTER INFECTION
     Dates: start: 2015, end: 2015

REACTIONS (1)
  - Enterocolitis haemorrhagic [Recovered/Resolved]
